FAERS Safety Report 5664900-7 (Version None)
Quarter: 2008Q1

REPORT INFORMATION
  Report Type: 
  Country: None (occurrence: None)
  Receive Date: 20080314
  Receipt Date: 20080304
  Transmission Date: 20080703
  Serious: Yes (Death, Hospitalization)
  Sender: FDA-Public Use
  Company Number: FR-PFIZER INC-2007104451

PATIENT
  Sex: Male
  Weight: 68 kg

DRUGS (7)
  1. SU-011,248 [Suspect]
     Indication: PANCREATIC CARCINOMA
     Route: 048
     Dates: start: 20070926, end: 20071029
  2. SU-011,248 [Suspect]
     Route: 048
     Dates: start: 20071107, end: 20071207
  3. INSULIN [Concomitant]
     Route: 058
  4. ALL OTHER THERAPEUTIC PRODUCTS [Concomitant]
     Route: 048
  5. ESOMEPRAZOLE MAGNESIUM [Concomitant]
     Route: 048
  6. PERINDOPRIL [Concomitant]
     Route: 048
  7. BECLOMETHASONE DIPROPIONATE [Concomitant]

REACTIONS (2)
  - CARDIAC FAILURE [None]
  - DYSPNOEA [None]
